FAERS Safety Report 4457701-9 (Version None)
Quarter: 2004Q3

REPORT INFORMATION
  Report Type: 
  Country: None (occurrence: None)
  Receive Date: 20040901
  Receipt Date: 20040506
  Transmission Date: 20050211
  Serious: No
  Sender: FDA-Public Use
  Company Number: FROV000194

PATIENT
  Age: 63 Year
  Sex: Male

DRUGS (12)
  1. FROVA [Suspect]
     Indication: MIGRAINE
     Dosage: ORAL
     Route: 048
     Dates: start: 20040401
  2. PROZAC [Concomitant]
  3. AGGRENOX (ASPIRIN/EXTENDED-RELEASE DIPYRIDAMOLE [Concomitant]
  4. TESTOSTERONE CREAM (TESTOSTERONE CREAM) [Concomitant]
  5. ARTHROTEC (DICLOFENAC SODIUM) [Concomitant]
  6. THORAZINE [Concomitant]
  7. FIORINAL (ACETYSALICYLIC ACID) [Concomitant]
  8. ULTRACET (TRAMADOL AND ACETAMINOPHEN) [Concomitant]
  9. DOXEPIN (DOXEPIN) [Concomitant]
  10. DESIPRAMINE HCL [Concomitant]
  11. ZOCOR [Concomitant]
  12. COLESTID [Concomitant]

REACTIONS (1)
  - MIGRAINE [None]
